FAERS Safety Report 15389208 (Version 1)
Quarter: 2018Q3

REPORT INFORMATION
  Report Type: Spontaneous
  Country: GB (occurrence: GB)
  Receive Date: 20180917
  Receipt Date: 20180917
  Transmission Date: 20181010
  Serious: Yes (Other)
  Sender: FDA-Public Use
  Company Number: GB-TEVA-2018-GB-955114

PATIENT
  Age: 69 Year
  Sex: Female
  Weight: 61 kg

DRUGS (13)
  1. NITROFURANTOIN. [Suspect]
     Active Substance: NITROFURANTOIN
     Dosage: 200 MILLIGRAM DAILY; FOR 3 DAYS
     Route: 065
     Dates: start: 20180817, end: 20180818
  2. OMEPRAZOLE. [Concomitant]
     Active Substance: OMEPRAZOLE
     Dosage: 1 DOSAGE FORMS DAILY; MORNING
     Route: 065
     Dates: start: 20170912
  3. SODIUM CHLORIDE. [Concomitant]
     Active Substance: SODIUM CHLORIDE
     Dosage: USE AS DIRECTED
     Dates: start: 20150527
  4. TIOTROPIUM [Concomitant]
     Active Substance: TIOTROPIUM
     Dosage: 2 DOSAGE FORMS DAILY;
     Route: 065
     Dates: start: 20171013
  5. TRIMETHOPRIM. [Concomitant]
     Active Substance: TRIMETHOPRIM
     Dosage: 1 DOSAGE FORMS DAILY; AT NIGHT
     Route: 065
     Dates: start: 20170912
  6. ESTRADIOL. [Concomitant]
     Active Substance: ESTRADIOL
     Dosage: INSERT 1 EACH NIGHT FOR 2 WEEKS THEN 1?2 TIMES ...
     Dates: start: 20170206
  7. SALBUTAMOL [Concomitant]
     Active Substance: ALBUTEROL
     Route: 055
     Dates: start: 20160114
  8. DALACIN [Concomitant]
     Active Substance: CLINDAMYCIN
     Route: 065
     Dates: start: 20180326
  9. TRIMBOW [Concomitant]
     Dosage: 4 DOSAGE FORMS DAILY; VIA SPACER
     Route: 065
     Dates: start: 20180817
  10. FLUTICASONE FUROATE [Concomitant]
     Active Substance: FLUTICASONE FUROATE
     Dosage: 1 DOSAGE FORMS DAILY;
     Route: 055
     Dates: start: 20180817
  11. PREDNISOLONE. [Concomitant]
     Active Substance: PREDNISOLONE
     Dosage: 6 DOSAGE FORMS DAILY; FOR STANDBY WHEN EXACERBAT...
     Route: 065
     Dates: start: 20171013
  12. RELVAR ELLIPTA [Concomitant]
     Active Substance: FLUTICASONE FUROATE\VILANTEROL TRIFENATATE
     Indication: CHRONIC OBSTRUCTIVE PULMONARY DISEASE
     Dosage: 1 DOSAGE FORMS DAILY;
     Route: 055
     Dates: start: 20170912, end: 20180817
  13. AMOXICILLIN. [Concomitant]
     Active Substance: AMOXICILLIN
     Indication: CHRONIC OBSTRUCTIVE PULMONARY DISEASE
     Dosage: 3 DOSAGE FORMS DAILY; FOR STANDBY
     Route: 065
     Dates: start: 20150527

REACTIONS (2)
  - Abdominal discomfort [Unknown]
  - Vomiting [Recovered/Resolved]

NARRATIVE: CASE EVENT DATE: 20180817
